FAERS Safety Report 19820645 (Version 8)
Quarter: 2022Q2

REPORT INFORMATION
  Report Type: Report from Study
  Country: GB (occurrence: GB)
  Receive Date: 20210913
  Receipt Date: 20220630
  Transmission Date: 20220721
  Serious: Yes (Hospitalization, Other)
  Sender: FDA-Public Use
  Company Number: GB-ROCHE-1888630

PATIENT
  Age: 75 Year
  Sex: Female

DRUGS (108)
  1. DOCETAXEL [Suspect]
     Active Substance: DOCETAXEL
     Indication: Breast cancer metastatic
     Dosage: 170 MG, Q3W
     Route: 042
     Dates: start: 20150721, end: 20150807
  2. DOCETAXEL [Suspect]
     Active Substance: DOCETAXEL
     Dosage: 170 MG, Q3W
     Route: 042
     Dates: start: 20150721, end: 20150721
  3. DOCETAXEL [Suspect]
     Active Substance: DOCETAXEL
     Dosage: 170 MG, Q3W
     Route: 042
     Dates: start: 20150807, end: 20150807
  4. ANASTROZOLE [Suspect]
     Active Substance: ANASTROZOLE
     Indication: Breast cancer metastatic
     Dosage: 1 MG, QD
     Route: 048
     Dates: start: 20160115
  5. ANASTROZOLE [Suspect]
     Active Substance: ANASTROZOLE
     Dosage: 1 MG, QD
     Route: 065
  6. ANASTROZOLE [Suspect]
     Active Substance: ANASTROZOLE
     Dosage: 178.041 MG, QD
     Route: 048
  7. ANASTROZOLE [Suspect]
     Active Substance: ANASTROZOLE
     Dosage: 10 MG, QD
     Route: 048
  8. ANASTROZOLE [Suspect]
     Active Substance: ANASTROZOLE
     Dosage: 10 MG, QD
     Route: 048
  9. ANASTROZOLE [Suspect]
     Active Substance: ANASTROZOLE
     Dosage: 1 MG, QD
  10. TRASTUZUMAB [Suspect]
     Active Substance: TRASTUZUMAB
     Indication: Breast cancer metastatic
     Dosage: 600 MG, Q3W
     Route: 058
     Dates: start: 20150721, end: 20151126
  11. TRASTUZUMAB [Suspect]
     Active Substance: TRASTUZUMAB
     Indication: HER2 positive breast cancer
     Dosage: 1200 MG, Q3W
     Route: 058
     Dates: start: 20150721
  12. TRASTUZUMAB [Suspect]
     Active Substance: TRASTUZUMAB
     Dosage: 1200 MG, Q3W
     Route: 058
     Dates: start: 20151126, end: 20151126
  13. TRASTUZUMAB [Suspect]
     Active Substance: TRASTUZUMAB
     Dosage: 600 MG, BID
     Route: 058
  14. TRASTUZUMAB [Suspect]
     Active Substance: TRASTUZUMAB
     Dosage: 600 MG, BID
     Route: 058
  15. HYALURONIDASE [Suspect]
     Active Substance: HYALURONIDASE
     Indication: Product used for unknown indication
     Dosage: 600 MG, Q3W
     Route: 058
     Dates: start: 20150721, end: 20151126
  16. PERTUZUMAB [Suspect]
     Active Substance: PERTUZUMAB
     Indication: Breast cancer metastatic
     Dosage: 420 MG, Q3W
     Route: 042
     Dates: start: 20150721, end: 20151126
  17. PERTUZUMAB [Suspect]
     Active Substance: PERTUZUMAB
     Indication: Breast cancer
     Dosage: 420 MG, Q3W
     Route: 042
     Dates: start: 20150721, end: 20151126
  18. PERTUZUMAB [Suspect]
     Active Substance: PERTUZUMAB
     Indication: Breast cancer metastatic
  19. HYALURONIDASE (HUMAN RECOMBINANT) [Suspect]
     Active Substance: HYALURONIDASE (HUMAN RECOMBINANT)
     Indication: HER2 positive breast cancer
     Dosage: 600 MG, Q3W
     Route: 058
     Dates: start: 20150721, end: 20151126
  20. PREDNISOLONE [Concomitant]
     Active Substance: PREDNISOLONE
     Dosage: 40 MG, QD
     Route: 048
     Dates: start: 20160601, end: 20160606
  21. METOCLOPRAMIDE [Concomitant]
     Active Substance: METOCLOPRAMIDE
     Indication: Prophylaxis
     Dosage: 10 MG
     Route: 048
     Dates: start: 20150721, end: 20150727
  22. METOCLOPRAMIDE [Concomitant]
     Active Substance: METOCLOPRAMIDE
     Dosage: 10 MG
     Dates: start: 20150730
  23. DEXAMETHASONE [Concomitant]
     Active Substance: DEXAMETHASONE
     Indication: Prophylaxis
     Dosage: 8 MG, BID
     Route: 048
     Dates: start: 20150721, end: 20150722
  24. DEXAMETHASONE [Concomitant]
     Active Substance: DEXAMETHASONE
     Dosage: 1 GTT DROPS
     Route: 048
     Dates: start: 20160601
  25. DEXAMETHASONE [Concomitant]
     Active Substance: DEXAMETHASONE
     Dosage: 1 GTT DROPS;
     Route: 048
     Dates: start: 20160601
  26. DEXAMETHASONE [Concomitant]
     Active Substance: DEXAMETHASONE
     Dosage: 8 MG, BID
     Route: 048
     Dates: start: 20150721, end: 20150722
  27. FENTANYL [Concomitant]
     Active Substance: FENTANYL
     Dosage: 200 UG
     Route: 042
     Dates: start: 20160531, end: 20160601
  28. FENTANYL [Concomitant]
     Active Substance: FENTANYL
     Dosage: 200 UG;
     Route: 042
     Dates: start: 20160531, end: 20160601
  29. CHLORPHENIRAMINE MALEATE [Concomitant]
     Active Substance: CHLORPHENIRAMINE MALEATE
     Indication: Premedication
     Dosage: 10 MG, Q3W
     Route: 042
     Dates: start: 20150721, end: 20151126
  30. CHLORPHENIRAMINE MALEATE [Concomitant]
     Active Substance: CHLORPHENIRAMINE MALEATE
     Dosage: 10 MG, Q3W
     Route: 042
     Dates: start: 20150721, end: 20151126
  31. CANDESARTAN [Concomitant]
     Active Substance: CANDESARTAN
     Indication: Product used for unknown indication
     Dosage: 32 MG, QD
     Route: 048
     Dates: start: 2013
  32. CANDESARTAN [Concomitant]
     Active Substance: CANDESARTAN
     Dosage: 32 MG, QD
     Route: 048
     Dates: start: 2013
  33. ALENDRONIC ACID [Concomitant]
     Active Substance: ALENDRONIC ACID
     Indication: Osteopenia
     Dosage: 70 MG, QW
     Route: 048
     Dates: start: 20180205
  34. ALENDRONIC ACID [Concomitant]
     Active Substance: ALENDRONIC ACID
     Dosage: 70 MG, QW
     Route: 048
     Dates: start: 20180205
  35. ATORVASTATIN [Concomitant]
     Active Substance: ATORVASTATIN
     Indication: Prophylaxis
     Dosage: 20 MG, QD
     Route: 048
     Dates: start: 20161130
  36. ATORVASTATIN [Concomitant]
     Active Substance: ATORVASTATIN
     Dosage: 20 MG, QD
     Route: 048
     Dates: start: 20161130
  37. ATORVASTATIN [Concomitant]
     Active Substance: ATORVASTATIN
     Dosage: 20 MG, QD
     Route: 048
  38. ATORVASTATIN [Concomitant]
     Active Substance: ATORVASTATIN
     Dosage: 20 MG, QD
     Route: 048
  39. ATORVASTATIN [Concomitant]
     Active Substance: ATORVASTATIN
     Dosage: 20 MG, QD
     Route: 048
     Dates: start: 20161130
  40. BISOPROLOL [Concomitant]
     Active Substance: BISOPROLOL
     Indication: Ejection fraction decreased
     Dosage: 1.25 MG, QD
     Route: 048
     Dates: start: 20160121
  41. BISOPROLOL [Concomitant]
     Active Substance: BISOPROLOL
     Dosage: 2.5 MG, BID
     Route: 048
     Dates: start: 20160415
  42. BISOPROLOL [Concomitant]
     Active Substance: BISOPROLOL
     Dosage: 2.5 MG, QD
     Route: 048
     Dates: start: 20160415
  43. BISOPROLOL [Concomitant]
     Active Substance: BISOPROLOL
     Dosage: 2.5 MG, QD
     Route: 048
     Dates: start: 20160415
  44. BISOPROLOL [Concomitant]
     Active Substance: BISOPROLOL
     Dosage: 1.25 MG, QD
     Route: 048
     Dates: start: 20160121
  45. BISOPROLOL [Concomitant]
     Active Substance: BISOPROLOL
     Dosage: 2.5 MG, BID
     Route: 048
     Dates: start: 20160415
  46. CLOPIDOGREL [Concomitant]
     Active Substance: CLOPIDOGREL BISULFATE
     Indication: Prophylaxis
     Dosage: 75 MG
     Route: 048
  47. CLOPIDOGREL [Concomitant]
     Active Substance: CLOPIDOGREL BISULFATE
     Dosage: 75 MG, QD
     Route: 048
     Dates: start: 20161130
  48. CLOPIDOGREL [Concomitant]
     Active Substance: CLOPIDOGREL BISULFATE
     Dosage: 75 MG;
     Route: 048
  49. CLOPIDOGREL [Concomitant]
     Active Substance: CLOPIDOGREL BISULFATE
     Dosage: 75 MG, QD
     Route: 048
     Dates: start: 20161130
  50. DALTEPARIN [Concomitant]
     Active Substance: DALTEPARIN
     Indication: Pleural effusion
     Dosage: 1000 IU, QD
     Route: 058
     Dates: start: 20151206, end: 20151206
  51. DALTEPARIN [Concomitant]
     Active Substance: DALTEPARIN
     Dosage: 1000 IU, QD
     Route: 058
     Dates: start: 20151206, end: 20151206
  52. DIGOXIN [Concomitant]
     Active Substance: DIGOXIN
     Indication: Product used for unknown indication
     Dosage: 62.5 MG, QD
     Route: 048
     Dates: start: 20160121
  53. DIGOXIN [Concomitant]
     Active Substance: DIGOXIN
     Dosage: 62.5 UG
     Route: 048
     Dates: start: 20160121
  54. DIGOXIN [Concomitant]
     Active Substance: DIGOXIN
     Dosage: 500 MG
     Route: 048
     Dates: start: 201701
  55. DIGOXIN [Concomitant]
     Active Substance: DIGOXIN
     Dosage: 62.5 MG, QD
     Route: 048
     Dates: start: 20160121
  56. DIGOXIN [Concomitant]
     Active Substance: DIGOXIN
     Dosage: 62.5 UG;
     Route: 048
     Dates: start: 20160121
  57. DIGOXIN [Concomitant]
     Active Substance: DIGOXIN
     Dosage: 500 MG;
     Route: 048
     Dates: start: 201701
  58. FELODIPINE [Concomitant]
     Active Substance: FELODIPINE
     Indication: Product used for unknown indication
     Dosage: 2.5 MG, QD
     Route: 048
     Dates: start: 20161030
  59. FELODIPINE [Concomitant]
     Active Substance: FELODIPINE
     Dosage: 2.5 MG, QD
     Route: 048
     Dates: start: 20161030
  60. FUROSEMIDE [Concomitant]
     Active Substance: FUROSEMIDE
     Indication: Dyspnoea
     Dosage: 50 MG, BID
     Route: 042
     Dates: start: 20151206, end: 20151207
  61. FUROSEMIDE [Concomitant]
     Active Substance: FUROSEMIDE
     Dosage: 40 MG, QD
     Dates: start: 20151211
  62. FUROSEMIDE [Concomitant]
     Active Substance: FUROSEMIDE
     Dosage: 100 MG, QD
     Route: 042
     Dates: start: 20151206, end: 20151207
  63. FUROSEMIDE [Concomitant]
     Active Substance: FUROSEMIDE
     Dosage: 100 MG, QD
     Route: 042
     Dates: start: 20151206, end: 20151207
  64. FUROSEMIDE [Concomitant]
     Active Substance: FUROSEMIDE
     Dosage: 50 MG, BID
     Route: 042
     Dates: start: 20151206, end: 20151207
  65. INDAPAMIDE [Concomitant]
     Active Substance: INDAPAMIDE
     Indication: Prophylaxis
     Dosage: 2.5 MG, QD
     Route: 048
     Dates: start: 2016
  66. INDAPAMIDE [Concomitant]
     Active Substance: INDAPAMIDE
     Dosage: 2.5 MG, QD
     Route: 048
     Dates: start: 2016
  67. LIDOCAINE [Concomitant]
     Active Substance: LIDOCAINE
     Indication: Pain
     Dosage: 1 DF, PRN
     Route: 062
     Dates: start: 20190405
  68. LISINOPRIL [Concomitant]
     Active Substance: LISINOPRIL
     Indication: Dyspnoea
     Dosage: 5 MG, QD
     Route: 048
     Dates: start: 20151218
  69. LISINOPRIL [Concomitant]
     Active Substance: LISINOPRIL
     Dosage: 2.5 MG, QD
     Route: 048
     Dates: start: 20160121, end: 20160415
  70. ONDANSETRON [Concomitant]
     Active Substance: ONDANSETRON
     Indication: Prophylaxis
     Dosage: 8 MG, BID (TWICE DAILY FOR 3 DAYS POST CHEMOTHERAPY)
     Route: 048
     Dates: start: 20150721
  71. ONDANSETRON [Concomitant]
     Active Substance: ONDANSETRON
     Dosage: 16 MG, QD
     Route: 048
     Dates: start: 20150721, end: 20150722
  72. ACETAMINOPHEN [Concomitant]
     Active Substance: ACETAMINOPHEN
     Indication: Premedication
     Dosage: 500 MG, QD
     Route: 048
  73. ACETAMINOPHEN [Concomitant]
     Active Substance: ACETAMINOPHEN
     Dosage: 1 G, Q3W
     Route: 048
     Dates: start: 20160531
  74. ACETAMINOPHEN [Concomitant]
     Active Substance: ACETAMINOPHEN
     Dosage: 1 G, Q3W
     Route: 048
     Dates: start: 20150721, end: 20150726
  75. RAMIPRIL [Concomitant]
     Active Substance: RAMIPRIL
     Indication: Prophylaxis
     Dosage: 2.5 MG, BID
     Route: 048
     Dates: start: 20160415, end: 201605
  76. RAMIPRIL [Concomitant]
     Active Substance: RAMIPRIL
     Dosage: 5 MG, QD
     Route: 048
     Dates: start: 2016
  77. RAMIPRIL [Concomitant]
     Active Substance: RAMIPRIL
     Dosage: 3.75 MG, QD
     Route: 048
     Dates: start: 201605, end: 201606
  78. RAMIPRIL [Concomitant]
     Active Substance: RAMIPRIL
     Dosage: 7.5 MG, QD
     Route: 048
     Dates: start: 201605, end: 201605
  79. RAMIPRIL [Concomitant]
     Active Substance: RAMIPRIL
     Dosage: 2 MG, QD
     Route: 048
     Dates: start: 20160415, end: 201605
  80. RAMIPRIL [Concomitant]
     Active Substance: RAMIPRIL
     Dosage: 1 DF, QD
     Route: 048
     Dates: start: 20160415, end: 201605
  81. RAMIPRIL [Concomitant]
     Active Substance: RAMIPRIL
     Dosage: 10 MG, BID
     Route: 048
     Dates: start: 2016
  82. RAMIPRIL [Concomitant]
     Active Substance: RAMIPRIL
     Dosage: 7.5 MG, QD
     Route: 048
     Dates: start: 201605, end: 201606
  83. RAMIPRIL [Concomitant]
     Active Substance: RAMIPRIL
     Dosage: UNK, QD
     Dates: start: 20160415, end: 201605
  84. RAMIPRIL [Concomitant]
     Active Substance: RAMIPRIL
     Dosage: 2 DF, QD
     Route: 048
     Dates: start: 20160415, end: 201605
  85. TRIMETHOPRIM [Concomitant]
     Active Substance: TRIMETHOPRIM
     Indication: Urinary tract infection
     Dosage: 200 MG, QD
     Route: 065
     Dates: start: 20181019, end: 20181023
  86. CALCIUM CARBONATE [Concomitant]
     Active Substance: CALCIUM CARBONATE
     Indication: Osteopenia
     Dosage: 1000 MG, QD
     Route: 048
     Dates: start: 20180205
  87. CALCIUM CARBONATE [Concomitant]
     Active Substance: CALCIUM CARBONATE
     Dosage: 1000 MG, QD
     Route: 048
     Dates: start: 20180205
  88. COCODAMOL [Concomitant]
     Active Substance: ACETAMINOPHEN\CODEINE PHOSPHATE
     Indication: Product used for unknown indication
     Dosage: 500 MG, PRN
     Route: 048
  89. COCODAMOL [Concomitant]
     Active Substance: ACETAMINOPHEN\CODEINE PHOSPHATE
     Dosage: 500 MG, PRN
     Route: 048
     Dates: start: 20150720
  90. COCODAMOL [Concomitant]
     Active Substance: ACETAMINOPHEN\CODEINE PHOSPHATE
     Dosage: 500 MG, PRN; AS NECESSARY
     Route: 048
  91. COCODAMOL [Concomitant]
     Active Substance: ACETAMINOPHEN\CODEINE PHOSPHATE
     Dosage: 500 MG, PRN; AS NECESSARY
     Route: 048
     Dates: start: 20150720
  92. IOPIDINE [Concomitant]
     Active Substance: APRACLONIDINE HYDROCHLORIDE
     Indication: Product used for unknown indication
     Dosage: 1 GTT, UNK
     Route: 047
     Dates: start: 20160601, end: 20160629
  93. IOPIDINE [Concomitant]
     Active Substance: APRACLONIDINE HYDROCHLORIDE
     Dosage: 1 GTT, UNK
     Route: 047
     Dates: start: 20160601, end: 20160629
  94. ORAMORPH SR SUSTAINED RELEASE [Concomitant]
     Active Substance: MORPHINE SULFATE
     Indication: Pain
     Dosage: 5 MG, PRN
     Route: 048
     Dates: start: 20190405
  95. DIAMOX SEQUELS [Concomitant]
     Active Substance: ACETAZOLAMIDE
     Dosage: 1 GTT, UNK
     Route: 047
     Dates: start: 20160601, end: 20160604
  96. IMODIUM [Concomitant]
     Active Substance: LOPERAMIDE HYDROCHLORIDE
     Dosage: 4 MG
     Dates: start: 20150730
  97. IMODIUM [Concomitant]
     Active Substance: LOPERAMIDE HYDROCHLORIDE
     Dosage: 4 MG;
     Dates: start: 20150730
  98. SENNA LEAF [Concomitant]
     Active Substance: SENNA LEAF
     Dosage: 15 MG, QD
     Dates: start: 20150721
  99. TOBRADEX [Concomitant]
     Active Substance: DEXAMETHASONE\TOBRAMYCIN
     Dosage: 1 GTT DROPS
     Route: 047
     Dates: start: 20160601
  100. TOBRADEX [Concomitant]
     Active Substance: DEXAMETHASONE\TOBRAMYCIN
     Dosage: 1 GTT, UNK
     Route: 047
     Dates: start: 20160601
  101. TOBRADEX [Concomitant]
     Active Substance: DEXAMETHASONE\TOBRAMYCIN
     Dosage: 1 DROP
     Route: 047
     Dates: start: 20160601
  102. TOBRADEX [Concomitant]
     Active Substance: DEXAMETHASONE\TOBRAMYCIN
     Dosage: 1 GTT DROPS
     Route: 047
     Dates: start: 20160601
  103. TOBRADEX [Concomitant]
     Active Substance: DEXAMETHASONE\TOBRAMYCIN
     Dosage: 1 GTT DROPS
     Route: 047
     Dates: start: 20160601
  104. CYCLOPENTOLATE HYDROCHLORIDE [Concomitant]
     Active Substance: CYCLOPENTOLATE HYDROCHLORIDE
     Dosage: 1 GTT, UNK
     Route: 047
     Dates: start: 20160601, end: 20160610
  105. IBUPROFEN [Concomitant]
     Active Substance: IBUPROFEN
     Dosage: 1200 MG, QD
     Dates: start: 20150918
  106. IBUPROFEN [Concomitant]
     Active Substance: IBUPROFEN
     Dosage: 1200 MG, QD
     Dates: start: 20150918
  107. CO-DYDRAMOL [Concomitant]
     Active Substance: ACETAMINOPHEN\DIHYDROCODEINE
     Indication: Back pain
     Dosage: 500 MG
     Route: 048
     Dates: start: 201701
  108. CO-DYDRAMOL [Concomitant]
     Active Substance: ACETAMINOPHEN\DIHYDROCODEINE
     Dosage: 500 MG;
     Route: 048
     Dates: start: 201701

REACTIONS (23)
  - Ejection fraction decreased [Recovered/Resolved]
  - Haemorrhoids [Recovered/Resolved with Sequelae]
  - Haemorrhoids [Recovered/Resolved with Sequelae]
  - Presyncope [Recovered/Resolved]
  - Retinal detachment [Recovered/Resolved with Sequelae]
  - Retinal detachment [Recovered/Resolved with Sequelae]
  - Rectal haemorrhage [Recovered/Resolved]
  - Diarrhoea [Recovered/Resolved]
  - Diarrhoea [Recovered/Resolved]
  - Dyspnoea [Recovered/Resolved]
  - Dyspnoea [Recovered/Resolved]
  - Headache [Not Recovered/Not Resolved]
  - Condition aggravated [Recovered/Resolved]
  - Weight decreased [Recovered/Resolved]
  - Pleural effusion [Recovered/Resolved]
  - Alopecia [Recovered/Resolved]
  - Back pain [Recovered/Resolved]
  - Back pain [Recovered/Resolved]
  - Dizziness [Recovered/Resolved]
  - Constipation [Recovered/Resolved]
  - Nausea [Recovered/Resolved]
  - Osteopenia [Not Recovered/Not Resolved]
  - Fatigue [Not Recovered/Not Resolved]

NARRATIVE: CASE EVENT DATE: 20150721
